FAERS Safety Report 5647264-4 (Version None)
Quarter: 2008Q1

REPORT INFORMATION
  Report Type: 
  Country: None (occurrence: None)
  Receive Date: 20080228
  Receipt Date: 20080219
  Transmission Date: 20080703
  Serious: Yes (Death, Hospitalization)
  Sender: FDA-Public Use
  Company Number: 6040920

PATIENT
  Age: 82 Year
  Sex: Female

DRUGS (4)
  1. BISOPROLOL FUMARATE [Suspect]
     Indication: MYOCARDIAL ISCHAEMIA
     Dosage: 1 DOSAGE (1 DOSAGE FROMS, 1 IN 1 D) ORAL
     Route: 048
  2. LEVOTHYROX 25                     (LEVOTHYROXINE SODIUM) [Suspect]
     Indication: DRUG USE FOR UNKNOWN INDICATION
     Dosage: 1 DOSAGE ORAL
     Route: 048
  3. EXOMUC (ACETYLCYSTEINE) [Concomitant]
  4. VENTOLIN [Concomitant]

REACTIONS (5)
  - DERMATITIS BULLOUS [None]
  - DYSPNOEA [None]
  - GENERALISED ERYTHEMA [None]
  - HYPOTHERMIA [None]
  - OEDEMA [None]
